FAERS Safety Report 8790547 (Version 1)
Quarter: 2012Q4

REPORT INFORMATION
  Report Type: Spontaneous
  Country: IE (occurrence: None)
  Receive Date: 20120905
  Receipt Date: 20120905
  Transmission Date: 20130627
  Serious: Yes (Other)
  Sender: FDA-Public Use
  Company Number: NSR_00649_2012

PATIENT
  Age: 69 Year
  Sex: Female

DRUGS (2)
  1. VENLAFAXINE [Suspect]
     Indication: INAPPROPRIATE ANTIDIURETIC HORMONE SECRETION
     Dosage: DF until not continuing
  2. AMITRYPTILINE [Suspect]
     Indication: INSOMNIA
     Dosage: DF until not continuing

REACTIONS (4)
  - Serotonin syndrome [None]
  - Hypotension [None]
  - Renal impairment [None]
  - Encephalopathy [None]
